FAERS Safety Report 6627003-0 (Version None)
Quarter: 2010Q1

REPORT INFORMATION
  Report Type: 
  Country: None (occurrence: None)
  Receive Date: 20100311
  Receipt Date: 20091123
  Transmission Date: 20100710
  Serious: No
  Sender: FDA-Public Use
  Company Number: US-KINGPHARMUSA00001-K200901482

PATIENT
  Sex: Female
  Weight: 83.9 kg

DRUGS (15)
  1. EMBEDA [Suspect]
     Indication: COMPLEX REGIONAL PAIN SYNDROME
     Dosage: 50 MG, BID
     Route: 048
     Dates: start: 20091109
  2. EMBEDA [Suspect]
     Indication: BACK PAIN
  3. VICODIN [Concomitant]
     Indication: PAIN
     Dosage: 5/500 MG, TID
  4. SYNTHROID [Concomitant]
     Indication: HYPOTHYROIDISM
     Dosage: UNK, QD
  5. FENOFIBRATE [Concomitant]
     Indication: BLOOD CHOLESTEROL INCREASED
     Dosage: 160 MG, QD
  6. MOTRIN [Concomitant]
     Dosage: UNK, PRN
  7. ALEVE (CAPLET) [Concomitant]
     Dosage: UNK, PRN
  8. VITAMINS [Concomitant]
     Dosage: UNK
  9. CALCIUM [Concomitant]
     Dosage: UNK
  10. CYMBALTA [Concomitant]
     Indication: DEPRESSION
     Dosage: 60 MG, QD
  11. BACLOFEN [Concomitant]
     Dosage: 20 MG QHS
  12. BACLOFEN [Concomitant]
     Dosage: 10 MG, PRN
  13. VOLTAREN [Concomitant]
     Indication: ARTHRITIS
     Dosage: UNK
  14. STOOL SOFTENER [Concomitant]
     Dosage: UNK
  15. FLECTOR [Concomitant]
     Dosage: UNK

REACTIONS (6)
  - DRUG DIVERSION [None]
  - DRUG INEFFECTIVE [None]
  - HEADACHE [None]
  - HEART RATE INCREASED [None]
  - NAUSEA [None]
  - WITHDRAWAL SYNDROME [None]
